FAERS Safety Report 17102067 (Version 1)
Quarter: 2019Q4

REPORT INFORMATION
  Report Type: Spontaneous
  Country: US (occurrence: US)
  Receive Date: 20191202
  Receipt Date: 20191202
  Transmission Date: 20200122
  Serious: No
  Sender: FDA-Public Use
  Company Number: US-GE HEALTHCARE LIFE SCIENCES-2019CSU002082

PATIENT
  Age: 94 Year
  Sex: Female

DRUGS (3)
  1. VISIPAQUE [Suspect]
     Active Substance: IODIXANOL
     Indication: PANCREATITIS CHRONIC
  2. PREDNISOLONE. [Concomitant]
     Active Substance: PREDNISOLONE
     Route: 042
  3. VISIPAQUE [Suspect]
     Active Substance: IODIXANOL
     Indication: COMPUTERISED TOMOGRAM
     Dosage: 100 ML, SINGLE
     Route: 042
     Dates: start: 20190410, end: 20190410

REACTIONS (1)
  - Urticaria [Recovered/Resolved]

NARRATIVE: CASE EVENT DATE: 20190410
